FAERS Safety Report 10267992 (Version 3)
Quarter: 2014Q3

REPORT INFORMATION
  Report Type: Spontaneous
  Country: US (occurrence: None)
  Receive Date: 20140625
  Receipt Date: 20140717
  Transmission Date: 20150326
  Serious: Yes (Other)
  Sender: FDA-Public Use
  Company Number: ADR-2013-02323

PATIENT
  Age: 55 Year
  Sex: Female

DRUGS (16)
  1. LACTOBACILLUS RHAMNOSUS [Suspect]
     Active Substance: LACTOBACILLUS RHAMNOSUS
  2. GABAPENTIN. [Suspect]
     Active Substance: GABAPENTIN
  3. ZYRTEC [Suspect]
     Active Substance: CETIRIZINE HYDROCHLORIDE
  4. OXYCODONE [Suspect]
     Active Substance: OXYCODONE
  5. LUNESTA [Suspect]
     Active Substance: ESZOPICLONE
  6. ACYCLOVIR. [Suspect]
     Active Substance: ACYCLOVIR
  7. PANTOPRAZOLE [Suspect]
     Active Substance: PANTOPRAZOLE SODIUM
  8. CITALOPRAM [Suspect]
     Active Substance: CITALOPRAM HYDROBROMIDE
  9. SINGULAIR [Suspect]
     Active Substance: MONTELUKAST SODIUM
  10. LIORESAL [Suspect]
     Active Substance: BACLOFEN
     Indication: MUSCLE SPASTICITY
  11. DOCUSATE SODIUM. [Suspect]
     Active Substance: DOCUSATE SODIUM
  12. MULTIVITAMIN [Suspect]
     Active Substance: VITAMINS
  13. LACTASE [Suspect]
     Active Substance: LACTASE
  14. BACLOFEN. [Suspect]
     Active Substance: BACLOFEN
  15. LOPERAMIDE [Suspect]
     Active Substance: LOPERAMIDE
  16. XANAX [Suspect]
     Active Substance: ALPRAZOLAM

REACTIONS (7)
  - Skin disorder [None]
  - Blister [None]
  - Pain [None]
  - Implant site inflammation [None]
  - Implant site pruritus [None]
  - Hypersensitivity [None]
  - Implant site erosion [None]

NARRATIVE: CASE EVENT DATE: 20130924
